FAERS Safety Report 12664320 (Version 1)
Quarter: 2016Q3

REPORT INFORMATION
  Report Type: Spontaneous
  Country: US (occurrence: US)
  Receive Date: 20160818
  Receipt Date: 20160818
  Transmission Date: 20161109
  Serious: Yes (Other)
  Sender: FDA-Public Use
  Company Number: US-ASTRAZENECA-2016SE86732

PATIENT
  Age: 607 Month
  Sex: Female
  Weight: 61.7 kg

DRUGS (2)
  1. PREMARIN [Concomitant]
     Active Substance: ESTROGENS, CONJUGATED
     Indication: RADICAL HYSTERECTOMY
     Route: 048
     Dates: start: 1996, end: 2002
  2. ARIMIDEX [Suspect]
     Active Substance: ANASTROZOLE
     Route: 048
     Dates: start: 2008, end: 2015

REACTIONS (3)
  - Breast cancer metastatic [Unknown]
  - Gait disturbance [Unknown]
  - Breast discharge [Unknown]

NARRATIVE: CASE EVENT DATE: 201505
